FAERS Safety Report 23123545 (Version 3)
Quarter: 2023Q4

REPORT INFORMATION
  Report Type: Report from Study
  Country: ES (occurrence: ES)
  Receive Date: 20231030
  Receipt Date: 20231106
  Transmission Date: 20240109
  Serious: Yes (Hospitalization, Disabling)
  Sender: FDA-Public Use
  Company Number: ES-002147023-NVSC2023ES230157

PATIENT
  Age: 64 Year
  Sex: Male
  Weight: 74 kg

DRUGS (8)
  1. SCEMBLIX [Suspect]
     Active Substance: ASCIMINIB HYDROCHLORIDE
     Indication: Chronic myeloid leukaemia
     Dosage: 200 MG, Q12H
     Route: 048
     Dates: start: 20221103, end: 20230929
  2. SCEMBLIX [Suspect]
     Active Substance: ASCIMINIB HYDROCHLORIDE
     Dosage: 160 MG, Q12H
     Route: 048
     Dates: start: 20231005
  3. DIAZEPAM [Concomitant]
     Active Substance: DIAZEPAM
     Indication: Anxiety
     Dosage: UNK
     Route: 065
     Dates: start: 2015, end: 20200113
  4. PLETAL [Concomitant]
     Active Substance: CILOSTAZOL
     Indication: Burning sensation
     Dosage: UNK
     Route: 065
     Dates: start: 20190617, end: 20200410
  5. LOSARTAN [Concomitant]
     Active Substance: LOSARTAN
     Indication: Hypertension
     Dosage: 100 MG PER DAY
     Route: 048
     Dates: start: 2015
  6. ASPIRIN [Concomitant]
     Active Substance: ASPIRIN
     Indication: Peripheral arterial occlusive disease
     Dosage: 300 MG PER DAY
     Route: 048
     Dates: start: 201702
  7. ASPIRIN [Concomitant]
     Active Substance: ASPIRIN
     Indication: Coronary artery disease
  8. GERMISDIN [Concomitant]
     Indication: Prophylaxis
     Dosage: UNK
     Route: 065
     Dates: start: 2020

REACTIONS (1)
  - Ischaemia [Recovered/Resolved with Sequelae]

NARRATIVE: CASE EVENT DATE: 20230901
